FAERS Safety Report 15187245 (Version 1)
Quarter: 2018Q3

REPORT INFORMATION
  Report Type: Report from Study
  Country: US (occurrence: US)
  Receive Date: 20180723
  Receipt Date: 20180723
  Transmission Date: 20181010
  Serious: No
  Sender: FDA-Public Use
  Company Number: US-EXELIXIS-CABO-18013912

PATIENT
  Age: 81 Year
  Sex: Female

DRUGS (12)
  1. AMIODARONE [Concomitant]
     Active Substance: AMIODARONE
  2. PROPRANOLOL [Concomitant]
     Active Substance: PROPRANOLOL HYDROCHLORIDE
  3. ATORVASTATIN [Concomitant]
     Active Substance: ATORVASTATIN
  4. VENTOLIN [Concomitant]
     Active Substance: ALBUTEROL SULFATE
  5. CABOMETYX [Suspect]
     Active Substance: CABOZANTINIB S-MALATE
     Indication: THYROID CANCER
     Dosage: 40 MG, QD
     Route: 048
     Dates: start: 201805
  6. ISOSORBIDE. [Concomitant]
     Active Substance: ISOSORBIDE
  7. DIPHENHYDRAMINE. [Concomitant]
     Active Substance: DIPHENHYDRAMINE
  8. FUROSEMIDE. [Concomitant]
     Active Substance: FUROSEMIDE
  9. LANTUS [Concomitant]
     Active Substance: INSULIN GLARGINE
  10. CABOMETYX [Suspect]
     Active Substance: CABOZANTINIB S-MALATE
     Indication: RENAL CANCER
     Dosage: 60 MG, QD
     Route: 048
     Dates: start: 20180406
  11. WARFARIN [Concomitant]
     Active Substance: WARFARIN
  12. LEVOTHYROXINE. [Concomitant]
     Active Substance: LEVOTHYROXINE

REACTIONS (8)
  - Nausea [Unknown]
  - Fatigue [Unknown]
  - Insomnia [Unknown]
  - Diarrhoea [Unknown]
  - Oedema [Unknown]
  - Glossodynia [Recovering/Resolving]
  - Weight decreased [Not Recovered/Not Resolved]
  - Decreased appetite [Not Recovered/Not Resolved]

NARRATIVE: CASE EVENT DATE: 20180514
